FAERS Safety Report 22540645 (Version 1)
Quarter: 2023Q2

REPORT INFORMATION
  Report Type: Spontaneous
  Country: AT (occurrence: AT)
  Receive Date: 20230609
  Receipt Date: 20230609
  Transmission Date: 20230722
  Serious: Yes (Hospitalization)
  Sender: FDA-Public Use
  Company Number: AT-SERVIER-S23006028

PATIENT

DRUGS (2)
  1. TIBSOVO [Suspect]
     Active Substance: IVOSIDENIB
     Indication: Acute myeloid leukaemia
     Dosage: 250 MG, QD
     Route: 048
     Dates: start: 202304, end: 20230522
  2. TIBSOVO [Suspect]
     Active Substance: IVOSIDENIB
     Dosage: 250 MG, QD
     Route: 048
     Dates: start: 20230527

REACTIONS (2)
  - Pneumonia [Recovered/Resolved]
  - Prescribed underdose [Recovered/Resolved]

NARRATIVE: CASE EVENT DATE: 20230401
